FAERS Safety Report 5996246-1 (Version None)
Quarter: 2008Q4

REPORT INFORMATION
  Report Type: 
  Country: None (occurrence: None)
  Receive Date: 20081212
  Receipt Date: 20081014
  Transmission Date: 20090506
  Serious: No
  Sender: FDA-Public Use
  Company Number: US-ABBOTT-08P-163-0481563-00

PATIENT
  Sex: Female
  Weight: 78.542 kg

DRUGS (3)
  1. HUMIRA [Suspect]
     Indication: PSORIASIS
     Route: 058
     Dates: start: 20080728
  2. MONTELUKAST SODIUM [Concomitant]
     Indication: RESPIRATORY DISORDER
     Route: 048
     Dates: start: 19980101
  3. ALBUTERAL [Concomitant]
     Indication: RESPIRATORY DISORDER
     Dates: start: 19980101

REACTIONS (1)
  - INJECTION SITE PAIN [None]
